FAERS Safety Report 25539356 (Version 1)
Quarter: 2025Q3

REPORT INFORMATION
  Report Type: Spontaneous
  Country: US (occurrence: None)
  Receive Date: 20250709
  Receipt Date: 20250709
  Transmission Date: 20251020
  Serious: Yes (Other)
  Sender: FDA-CTU
  Company Number: None

PATIENT
  Age: 84 Year
  Sex: Male

DRUGS (1)
  1. YESINTEK [Suspect]
     Active Substance: USTEKINUMAB-KFCE

REACTIONS (4)
  - Vertigo [None]
  - Fall [None]
  - Head injury [None]
  - Circulatory collapse [None]
